FAERS Safety Report 4382386-X (Version None)
Quarter: 2004Q2

REPORT INFORMATION
  Report Type: 
  Country: None (occurrence: None)
  Receive Date: 20040622
  Receipt Date: 20040610
  Transmission Date: 20050107
  Serious: Yes (Other)
  Sender: FDA-Public Use
  Company Number: NO-BRISTOL-MYERS SQUIBB COMPANY-12612032

PATIENT
  Age: 82 Year
  Sex: Male

DRUGS (1)
  1. PENTREXYL INJ [Suspect]
     Indication: PNEUMONIA
     Route: 042

REACTIONS (2)
  - JAUNDICE [None]
  - TRANSAMINASES INCREASED [None]
